FAERS Safety Report 7967773-2 (Version None)
Quarter: 2011Q4

REPORT INFORMATION
  Report Type: 
  Country: None (occurrence: None)
  Receive Date: 20111209
  Receipt Date: 20111129
  Transmission Date: 20120403
  Serious: Yes (Hospitalization)
  Sender: FDA-Public Use
  Company Number: US-BAYER-201031856NA

PATIENT
  Age: 41 Year
  Sex: Female
  Weight: 66 kg

DRUGS (15)
  1. PYRIDOXINE HCL [Concomitant]
  2. SYNTHROID [Concomitant]
     Dosage: UNK
     Route: 048
     Dates: start: 20081117, end: 20081217
  3. PROMETHAZINE [Concomitant]
     Indication: MULTIPLE ALLERGIES
     Dosage: 25 MG, QD
     Route: 048
     Dates: start: 20081121, end: 20081206
  4. DROSPIRENONE AND ETHINYL ESTRADIOL [Suspect]
     Indication: CONTRACEPTION
     Dosage: UNK
     Route: 048
     Dates: start: 20081001, end: 20081001
  5. ONE-A-DAY PLUS IRON [FOLIC ACID,IRON,VITAMINS NOS] [Concomitant]
     Indication: MEDICAL DIET
     Dosage: UNK
     Route: 048
     Dates: start: 20081001, end: 20081101
  6. VITAMIN B6 [Concomitant]
  7. FOLIC ACID [Concomitant]
  8. PERCOCET [Concomitant]
  9. YASMIN [Suspect]
     Dosage: UNK
     Route: 048
     Dates: start: 20081101, end: 20081101
  10. SYNTHROID [Concomitant]
     Indication: THYROID DISORDER
     Dosage: 0.125 MG, QD
     Route: 048
     Dates: start: 20000101
  11. YASMIN [Suspect]
     Indication: CONTRACEPTION
     Dosage: UNK
     Route: 048
     Dates: start: 20060401, end: 20080901
  12. LEVOXYL [Concomitant]
     Dosage: UNK
     Route: 048
     Dates: start: 20000101
  13. VITAMIN B-12 [Concomitant]
     Indication: VITAMIN B12 DEFICIENCY
  14. ZYRTEC [Concomitant]
  15. CYANOCOBALAMIN [Concomitant]

REACTIONS (5)
  - THROMBOTIC CEREBRAL INFARCTION [None]
  - DEPRESSION [None]
  - CEREBROVASCULAR ACCIDENT [None]
  - ANXIETY [None]
  - INTRACRANIAL VENOUS SINUS THROMBOSIS [None]
